FAERS Safety Report 8453428-7 (Version None)
Quarter: 2012Q2

REPORT INFORMATION
  Report Type: 
  Country: None (occurrence: None)
  Receive Date: 20120620
  Receipt Date: 20120516
  Transmission Date: 20120825
  Serious: No
  Sender: FDA-Public Use
  Company Number: US-VERTEX PHARMACEUTICALS INC.-AE-2012-007361

PATIENT
  Sex: Female
  Weight: 77.18 kg

DRUGS (7)
  1. VITAMIN D [Concomitant]
     Route: 048
  2. INCIVEK [Suspect]
     Indication: HEPATITIS C
     Route: 048
     Dates: start: 20120515
  3. PEGASYS [Concomitant]
     Indication: HEPATITIS C
     Route: 058
     Dates: start: 20120515
  4. RIBAVIRIN [Concomitant]
     Indication: HEPATITIS C
     Route: 048
     Dates: start: 20120515
  5. ASCORBIC ACID [Concomitant]
     Route: 048
  6. FISH OIL [Concomitant]
     Route: 048
  7. MULTIPLE VITAMIN [Concomitant]
     Route: 048

REACTIONS (1)
  - FATIGUE [None]
